FAERS Safety Report 17541855 (Version 8)
Quarter: 2020Q2

REPORT INFORMATION
  Report Type: Report from Study
  Country: AU (occurrence: AU)
  Receive Date: 20200313
  Receipt Date: 20200508
  Transmission Date: 20200713
  Serious: Yes (Hospitalization)
  Sender: FDA-Public Use
  Company Number: AU-EISAI MEDICAL RESEARCH-EC-2020-071736

PATIENT
  Age: 70 Year
  Sex: Female
  Weight: 41.7 kg

DRUGS (12)
  1. PANADOL [Concomitant]
     Active Substance: ACETAMINOPHEN
     Dates: start: 201909
  2. MAGNESIUM [Concomitant]
     Active Substance: MAGNESIUM
     Dates: start: 20191231
  3. PANADEINE [Concomitant]
     Dates: start: 20191212
  4. LENVATINIB [Suspect]
     Active Substance: LENVATINIB
     Indication: ENDOMETRIAL CANCER
     Dosage: STARTING DOSE OF 20 MILLIGRAM (FLUCTUATING DOSAGE)
     Route: 048
     Dates: start: 20191219, end: 20200302
  5. LENVATINIB [Suspect]
     Active Substance: LENVATINIB
     Route: 048
     Dates: start: 20200303
  6. PERINDOPRIL [Concomitant]
     Active Substance: PERINDOPRIL
     Dates: start: 20200107
  7. PEMBROLIZUMAB. [Suspect]
     Active Substance: PEMBROLIZUMAB
     Indication: ENDOMETRIAL CANCER
     Route: 041
     Dates: start: 20191219, end: 20200129
  8. PEMBROLIZUMAB. [Suspect]
     Active Substance: PEMBROLIZUMAB
     Route: 041
     Dates: start: 20200219, end: 20200219
  9. OLANZAPINE. [Concomitant]
     Active Substance: OLANZAPINE
     Dates: start: 20200107
  10. PRAMIN [Concomitant]
     Dates: start: 20191231
  11. ONDANSETRON [Concomitant]
     Active Substance: ONDANSETRON
     Dates: start: 20200107
  12. ENDONE [Concomitant]
     Active Substance: OXYCODONE HYDROCHLORIDE
     Dates: start: 20191212

REACTIONS (1)
  - Pyrexia [Not Recovered/Not Resolved]

NARRATIVE: CASE EVENT DATE: 20200306
